FAERS Safety Report 8588768 (Version 3)
Quarter: 2012Q4

REPORT INFORMATION
  Report Type: 
  Country: US (occurrence: US)
  Receive Date: 20120531
  Receipt Date: 20121018
  Transmission Date: 20130627
  Serious: Yes (Hospitalization, Disabling, Other)
  Sender: FDA-Public Use
  Company Number: US-009507513-1205USA04577

PATIENT

DRUGS (4)
  1. FOSAMAX [Suspect]
     Indication: OSTEOPENIA
     Dosage: 70 mg, qw
     Route: 048
     Dates: start: 20070220, end: 200803
  2. FOSAMAX [Suspect]
     Indication: OSTEOPOROSIS
  3. ALENDRONATE SODIUM [Suspect]
     Dosage: 70 mg, UNK
     Dates: start: 20080306, end: 201103
  4. BONIVA [Suspect]
     Dosage: UNK
     Dates: start: 20070320, end: 200704

REACTIONS (58)
  - Femur fracture [Recovering/Resolving]
  - Osteoporosis [Not Recovered/Not Resolved]
  - Stress fracture [Not Recovered/Not Resolved]
  - Femur fracture [Not Recovered/Not Resolved]
  - Low turnover osteopathy [Not Recovered/Not Resolved]
  - Mastectomy [Unknown]
  - Aspiration pleural cavity [Unknown]
  - Mass excision [Unknown]
  - Abscess drainage [Unknown]
  - Spinal column stenosis [Unknown]
  - Spinal operation [Unknown]
  - Chest tube insertion [Unknown]
  - Neuralgia [Unknown]
  - Knee arthroplasty [Unknown]
  - Osteoarthritis [Unknown]
  - Calcium deficiency [Unknown]
  - Compression fracture [Unknown]
  - Hyperglycaemia [Unknown]
  - Clostridium difficile colitis [Recovering/Resolving]
  - Pseudomembranous colitis [Unknown]
  - Hyperlipidaemia [Unknown]
  - Muscle disorder [Unknown]
  - Bronchitis [Unknown]
  - Type 2 diabetes mellitus [Unknown]
  - Fungal infection [Unknown]
  - Gastrooesophageal reflux disease [Unknown]
  - Diarrhoea [Unknown]
  - Decubitus ulcer [Not Recovered/Not Resolved]
  - Peripheral vascular disorder [Unknown]
  - Essential tremor [Unknown]
  - Transfusion [Recovered/Resolved]
  - Anaemia postoperative [Recovered/Resolved]
  - Empyema [Unknown]
  - Hypotension [Recovered/Resolved]
  - Renal failure acute [Recovered/Resolved]
  - Spinal compression fracture [Not Recovered/Not Resolved]
  - Large intestine polyp [Recovered/Resolved]
  - Back pain [Not Recovered/Not Resolved]
  - Vertebroplasty [Recovering/Resolving]
  - Spinal decompression [Recovering/Resolving]
  - Lumbar spinal stenosis [Recovering/Resolving]
  - Muscular weakness [Not Recovered/Not Resolved]
  - Left ventricular hypertrophy [Unknown]
  - Tricuspid valve incompetence [Unknown]
  - Mitral valve incompetence [Unknown]
  - Pulmonary valve incompetence [Unknown]
  - Urinary tract infection [Recovered/Resolved]
  - Cellulitis [Recovering/Resolving]
  - Asthenia [Unknown]
  - Neuropathy peripheral [Unknown]
  - Troponin increased [Unknown]
  - Hypokalaemia [Unknown]
  - Paraplegia [Unknown]
  - Neurogenic bladder [Unknown]
  - Gait disturbance [Not Recovered/Not Resolved]
  - Radiculopathy [Unknown]
  - Venous thrombosis [Unknown]
  - Cellulitis [Recovering/Resolving]
